FAERS Safety Report 10026648 (Version 1)
Quarter: 2014Q1

REPORT INFORMATION
  Report Type: Spontaneous
  Country: US (occurrence: US)
  Receive Date: 20140321
  Receipt Date: 20140321
  Transmission Date: 20141002
  Serious: Yes (Other)
  Sender: FDA-Public Use
  Company Number: US-ROCHE-1368405

PATIENT
  Age: 66 Year
  Sex: Male

DRUGS (2)
  1. ZELBORAF [Suspect]
     Indication: MALIGNANT MELANOMA
     Route: 048
     Dates: start: 20131017, end: 20140204
  2. ZELBORAF [Suspect]
     Route: 048
     Dates: end: 20140318

REACTIONS (1)
  - Pneumonia [Unknown]
